FAERS Safety Report 25120507 (Version 1)
Quarter: 2025Q1

REPORT INFORMATION
  Report Type: Report from Study
  Country: US (occurrence: US)
  Receive Date: 20250325
  Receipt Date: 20250325
  Transmission Date: 20250408
  Serious: Yes (Other)
  Sender: ABBVIE
  Company Number: US-ABBVIE-6188253

PATIENT
  Sex: Male

DRUGS (1)
  1. RINVOQ [Suspect]
     Active Substance: UPADACITINIB
     Indication: Product used for unknown indication
     Route: 048
     Dates: start: 2022

REACTIONS (5)
  - Prostate cancer metastatic [Not Recovered/Not Resolved]
  - Peripheral swelling [Unknown]
  - Joint swelling [Unknown]
  - Arthralgia [Unknown]
  - Pain in extremity [Unknown]
